FAERS Safety Report 11604002 (Version 1)
Quarter: 2015Q4

REPORT INFORMATION
  Report Type: Other
  Country: CZ (occurrence: CZ)
  Receive Date: 20151007
  Receipt Date: 20151007
  Transmission Date: 20160304
  Serious: Yes (Death, Life-Threatening, Hospitalization)
  Sender: FDA-Public Use
  Company Number: CZ-ENDO PHARMACEUTICALS INC-2015-003149

PATIENT
  Age: 14 Year
  Sex: Female

DRUGS (2)
  1. METOPROLOL [Suspect]
     Active Substance: METOPROLOL
     Indication: PRODUCT USED FOR UNKNOWN INDICATION
     Dosage: PROBABLY 1000 MG
     Route: 048
  2. PROPAFENONE HYDROCHLORIDE TABLETS [Suspect]
     Active Substance: PROPAFENONE HYDROCHLORIDE
     Indication: PRODUCT USED FOR UNKNOWN INDICATION
     Dosage: PROBABLY 1500-3000 MG
     Route: 048

REACTIONS (9)
  - Completed suicide [Fatal]
  - Electrocardiogram QRS complex prolonged [Unknown]
  - Intentional overdose [Fatal]
  - Seizure [Unknown]
  - Cardiac arrest [Recovered/Resolved]
  - Brain oedema [Unknown]
  - Potentiating drug interaction [Unknown]
  - Loss of consciousness [Unknown]
  - Acute kidney injury [Unknown]
